FAERS Safety Report 4865107-3 (Version None)
Quarter: 2005Q4

REPORT INFORMATION
  Report Type: 
  Country: None (occurrence: None)
  Receive Date: 20051223
  Receipt Date: 20050629
  Transmission Date: 20060501
  Serious: Yes (Death, Life-Threatening, Hospitalization, Disabling)
  Sender: FDA-Public Use
  Company Number: 200511710EU

PATIENT
  Age: 85 Year
  Sex: Male

DRUGS (4)
  1. FUROSEMIDE [Suspect]
     Indication: CARDIAC FAILURE
     Route: 048
     Dates: start: 20050404, end: 20050603
  2. CIMETIDINE [Suspect]
     Indication: GASTRITIS EROSIVE
     Route: 048
     Dates: start: 19990601, end: 20050603
  3. FERROUS SULFATE TAB [Concomitant]
     Indication: ANAEMIA
     Route: 048
     Dates: start: 20050101, end: 20050603
  4. THYROXINE [Concomitant]
     Indication: HYPOTHYROIDISM
     Route: 048
     Dates: start: 20030501

REACTIONS (2)
  - PNEUMONIA [None]
  - TOXIC EPIDERMAL NECROLYSIS [None]
